FAERS Safety Report 17947026 (Version 1)
Quarter: 2020Q2

REPORT INFORMATION
  Report Type: Spontaneous
  Country: US (occurrence: US)
  Receive Date: 20200625
  Receipt Date: 20200625
  Transmission Date: 20200714
  Serious: Yes (Other)
  Sender: FDA-Public Use
  Company Number: None

PATIENT
  Age: 52 Year
  Sex: Female
  Weight: 82.1 kg

DRUGS (1)
  1. NITROFURANTOIN 100MG [Suspect]
     Active Substance: NITROFURANTOIN
     Indication: URINARY TRACT INFECTION
     Route: 048
     Dates: start: 20200624

REACTIONS (2)
  - Drug eruption [None]
  - Urticaria [None]

NARRATIVE: CASE EVENT DATE: 20200624
